FAERS Safety Report 4400652-6 (Version None)
Quarter: 2004Q3

REPORT INFORMATION
  Report Type: 
  Country: None (occurrence: None)
  Receive Date: 20040716
  Receipt Date: 20040716
  Transmission Date: 20050211
  Serious: Yes (Death, Hospitalization, Other)
  Sender: FDA-Public Use
  Company Number: None

PATIENT
  Age: 77 Year
  Sex: Male
  Weight: 83 kg

DRUGS (4)
  1. VISIPAQUE [Suspect]
     Indication: THROMBOSIS
     Dosage: 30 ML IV
     Route: 042
     Dates: start: 20040506
  2. GADODIAMIDE [Suspect]
     Dosage: 40 ML IV
     Route: 042
     Dates: start: 20040506
  3. ANTIBIOTICS [Concomitant]
  4. ANTIHYPERTENSIVE [Concomitant]

REACTIONS (3)
  - DIALYSIS [None]
  - PNEUMONIA [None]
  - RENAL FAILURE ACUTE [None]
